FAERS Safety Report 9919691 (Version 1)
Quarter: 2014Q1

REPORT INFORMATION
  Report Type: Spontaneous
  Country: FR (occurrence: FR)
  Receive Date: 20140224
  Receipt Date: 20140224
  Transmission Date: 20141002
  Serious: Yes (Hospitalization, Other)
  Sender: FDA-Public Use
  Company Number: FR-ELI_LILLY_AND_COMPANY-FR201402003688

PATIENT
  Age: 26 Year
  Sex: Female
  Weight: 58 kg

DRUGS (8)
  1. CYMBALTA [Suspect]
     Indication: DEPRESSION
     Dosage: 60 MG, QD
     Route: 048
  2. NEURONTIN [Suspect]
     Indication: NEURALGIA
     Dosage: 600 MG, TID
     Route: 048
  3. LAROXYL [Suspect]
     Indication: INSOMNIA
     Dosage: 5 DF, EACH EVENING
     Route: 048
  4. IMOVANE [Suspect]
     Indication: INSOMNIA
     Dosage: 7.5 MG, QD
     Route: 048
  5. TRANSIPEG /00754501/ [Suspect]
     Indication: CONSTIPATION
     Dosage: 2 DF, PRN
     Route: 048
  6. DUROGESIC [Suspect]
     Indication: COMPLEX REGIONAL PAIN SYNDROME
     Dosage: 1 DF, EVERY 72H
     Route: 062
     Dates: end: 20130828
  7. XANAX [Suspect]
     Indication: ANXIETY
     Dosage: 2 DF, QD
     Route: 048
  8. KETAMINE [Suspect]
     Indication: COMPLEX REGIONAL PAIN SYNDROME
     Dosage: UNK, UNKNOWN
     Route: 065
     Dates: end: 20130828

REACTIONS (4)
  - Panic attack [Recovered/Resolved]
  - Psychomotor hyperactivity [Recovered/Resolved]
  - Vomiting [Recovered/Resolved]
  - Dysphoria [Unknown]
